FAERS Safety Report 16629315 (Version 3)
Quarter: 2019Q4

REPORT INFORMATION
  Report Type: Spontaneous
  Country: JP (occurrence: JP)
  Receive Date: 20190725
  Receipt Date: 20191116
  Transmission Date: 20200122
  Serious: Yes (Death, Life-Threatening, Hospitalization, Other)
  Sender: FDA-Public Use
  Company Number: JP-AMGEN-JPNSP2019116379

PATIENT
  Age: 77 Year
  Sex: Female

DRUGS (1)
  1. PARSABIV [Suspect]
     Active Substance: ETELCALCETIDE HYDROCHLORIDE
     Indication: HYPERPARATHYROIDISM SECONDARY
     Dosage: UNK, DOSE UNSPECIFIED
     Route: 010

REACTIONS (2)
  - Hepatic encephalopathy [Fatal]
  - Bile duct stone [Unknown]

NARRATIVE: CASE EVENT DATE: 20190207
